FAERS Safety Report 4993683-9 (Version None)
Quarter: 2006Q2

REPORT INFORMATION
  Report Type: 
  Country: None (occurrence: None)
  Receive Date: 20060503
  Receipt Date: 20060503
  Transmission Date: 20061013
  Serious: Yes (Hospitalization)
  Sender: FDA-Public Use
  Company Number: None

PATIENT
  Sex: Male
  Weight: 83.4619 kg

DRUGS (14)
  1. WARFARIN SODIUM [Suspect]
     Indication: ATRIAL FIBRILLATION
     Dosage: VARIABLE QDAY PO
     Route: 048
     Dates: start: 20000403, end: 20060502
  2. ASPIRIN [Suspect]
     Indication: ATRIAL FIBRILLATION
     Dosage: 81 MG QDAY PO
     Route: 048
     Dates: start: 20030319, end: 20060502
  3. ACETAMINOPHEN [Concomitant]
  4. AMIODARONE HCL-PACERONE [Concomitant]
  5. ASPIRIN [Concomitant]
  6. CYANOCOBALAMIN [Concomitant]
  7. LANOXIN [Concomitant]
  8. FERROUS SULFATE TAB [Concomitant]
  9. FOLIC ACID [Concomitant]
  10. FUROSEMIDE [Concomitant]
  11. SYNTHROID [Concomitant]
  12. LISINOPRIL [Concomitant]
  13. METOPROLOL SUCC [Concomitant]
  14. MEXILETINE HCL [Concomitant]

REACTIONS (3)
  - COLONIC POLYP [None]
  - INTERNATIONAL NORMALISED RATIO INCREASED [None]
  - RECTAL HAEMORRHAGE [None]
